FAERS Safety Report 6666788-4 (Version None)
Quarter: 2010Q2

REPORT INFORMATION
  Report Type: 
  Country: None (occurrence: None)
  Receive Date: 20100405
  Receipt Date: 20100323
  Transmission Date: 20101027
  Serious: Yes (Hospitalization, Other)
  Sender: FDA-Public Use
  Company Number: JP-RANBAXY-2009US-29836

PATIENT

DRUGS (5)
  1. NORTRIPTYLINE HYDROCHLORIDE [Suspect]
     Indication: DEPRESSION
     Dosage: UNK, UNK
     Route: 065
  2. MIANSERIN [Suspect]
     Indication: DEPRESSION
     Route: 065
  3. SERTRALINE HCL [Suspect]
     Indication: DEPRESSION
     Route: 065
  4. BROTIZOLAM [Suspect]
     Indication: DEPRESSION
     Route: 065
  5. AMANTADINE HCL [Suspect]
     Indication: DEPRESSION
     Route: 065

REACTIONS (1)
  - BRUGADA SYNDROME [None]
